FAERS Safety Report 5104610-8 (Version None)
Quarter: 2006Q3

REPORT INFORMATION
  Report Type: 
  Country: None (occurrence: None)
  Receive Date: 20060914
  Receipt Date: 20060525
  Transmission Date: 20061208
  Serious: No
  Sender: FDA-Public Use
  Company Number: US-BRISTOL-MYERS SQUIBB COMPANY-13391172

PATIENT
  Age: 47 Year
  Sex: Female

DRUGS (2)
  1. BUSPAR [Suspect]
  2. AVAPRO [Concomitant]
     Indication: HYPERTENSION

REACTIONS (1)
  - HYPOTENSION [None]
